FAERS Safety Report 14613981 (Version 1)
Quarter: 2018Q1

REPORT INFORMATION
  Report Type: Spontaneous
  Country: SE (occurrence: SE)
  Receive Date: 20180308
  Receipt Date: 20180308
  Transmission Date: 20180509
  Serious: Yes (Hospitalization)
  Sender: FDA-Public Use
  Company Number: SE-ASTRAZENECA-2018SE26409

PATIENT
  Age: 65 Year
  Sex: Male

DRUGS (8)
  1. FOLACIN [Concomitant]
     Active Substance: FOLIC ACID
  2. TROMBYL [Concomitant]
     Active Substance: ASPIRIN
  3. BISOPROLOL [Concomitant]
     Active Substance: BISOPROLOL
  4. SALURES [Concomitant]
     Active Substance: BENDROFLUMETHIAZIDE
  5. METHOTREXATE. [Concomitant]
     Active Substance: METHOTREXATE
  6. VALSARTAN. [Concomitant]
     Active Substance: VALSARTAN
  7. CRESTOR [Suspect]
     Active Substance: ROSUVASTATIN CALCIUM
     Indication: BLOOD CHOLESTEROL INCREASED
     Route: 048
     Dates: start: 20171020, end: 20171028
  8. SYMBICORT [Concomitant]
     Active Substance: BUDESONIDE\FORMOTEROL FUMARATE DIHYDRATE

REACTIONS (1)
  - Tendon rupture [Not Recovered/Not Resolved]

NARRATIVE: CASE EVENT DATE: 20171028
